FAERS Safety Report 13290240 (Version 1)
Quarter: 2017Q1

REPORT INFORMATION
  Report Type: Spontaneous
  Country: US (occurrence: US)
  Receive Date: 20170303
  Receipt Date: 20170303
  Transmission Date: 20170428
  Serious: No
  Sender: FDA-Public Use
  Company Number: US-009507513-1702USA011745

PATIENT
  Sex: Female

DRUGS (1)
  1. NEXPLANON [Suspect]
     Active Substance: ETONOGESTREL
     Indication: CONTRACEPTION
     Dosage: 68 MG (IMPLANT), UNK
     Route: 059
     Dates: start: 20170222

REACTIONS (4)
  - Paraesthesia [Recovering/Resolving]
  - Implant site pain [Recovering/Resolving]
  - Hypoaesthesia [Recovering/Resolving]
  - Implant site bruising [Recovering/Resolving]

NARRATIVE: CASE EVENT DATE: 201702
